FAERS Safety Report 8821620 (Version 1)
Quarter: 2012Q4

REPORT INFORMATION
  Report Type: 
  Country: US (occurrence: US)
  Receive Date: 20121002
  Receipt Date: 20121002
  Transmission Date: 20130627
  Serious: No
  Sender: FDA-Public Use
  Company Number: US-009507513-1209USA000437

PATIENT
  Sex: Female

DRUGS (2)
  1. PEGINTRON [Suspect]
     Dosage: 150 Microgram, qw
     Route: 058
     Dates: start: 201206
  2. RIBASPHERE [Concomitant]

REACTIONS (4)
  - Dry mouth [Unknown]
  - Rash [Unknown]
  - Pruritus [Unknown]
  - Influenza like illness [Unknown]
